FAERS Safety Report 24646750 (Version 1)
Quarter: 2024Q4

REPORT INFORMATION
  Report Type: Spontaneous
  Country: US (occurrence: None)
  Receive Date: 20241120
  Receipt Date: 20241120
  Transmission Date: 20250115
  Serious: Yes (Death)
  Sender: Public
  Company Number: None

PATIENT
  Age: 75 Year
  Sex: Female

DRUGS (1)
  1. LENALIDOMIDE [Suspect]
     Active Substance: LENALIDOMIDE
     Indication: Plasma cell myeloma
     Dosage: 25MG QD ORAL
     Route: 048
     Dates: start: 20230830, end: 20241002

REACTIONS (5)
  - Multiple organ dysfunction syndrome [None]
  - Acute kidney injury [None]
  - Hypoxia [None]
  - Encephalopathy [None]
  - Pancytopenia [None]

NARRATIVE: CASE EVENT DATE: 20241120
